FAERS Safety Report 5948397-5 (Version None)
Quarter: 2008Q4

REPORT INFORMATION
  Report Type: 
  Country: None (occurrence: None)
  Receive Date: 20081110
  Receipt Date: 20081110
  Transmission Date: 20090506
  Serious: Yes (Hospitalization)
  Sender: FDA-Public Use
  Company Number: None

PATIENT
  Age: 60 Year
  Sex: Male
  Weight: 63.5036 kg

DRUGS (1)
  1. LEVAQUIN [Suspect]
     Indication: URINARY TRACT INFECTION
     Dosage: ONE TABLET EVERY DAY PO
     Route: 048
     Dates: start: 20060909, end: 20060915

REACTIONS (8)
  - ANURIA [None]
  - BLADDER DISORDER [None]
  - CATHETER RELATED COMPLICATION [None]
  - CONVULSION [None]
  - DIARRHOEA [None]
  - DRUG INEFFECTIVE [None]
  - PAIN [None]
  - URINARY BLADDER HAEMORRHAGE [None]
